FAERS Safety Report 7866259-3 (Version None)
Quarter: 2011Q4

REPORT INFORMATION
  Report Type: 
  Country: None (occurrence: None)
  Receive Date: 20111028
  Receipt Date: 20110519
  Transmission Date: 20120403
  Serious: No
  Sender: FDA-Public Use
  Company Number: US-GLAXOSMITHKLINE-A0928054A

PATIENT
  Age: 62 Year
  Sex: Female

DRUGS (11)
  1. ADVAIR DISKUS 100/50 [Suspect]
     Indication: CHRONIC OBSTRUCTIVE PULMONARY DISEASE
     Dosage: 1PUFF TWICE PER DAY
     Route: 055
     Dates: start: 20100501
  2. FUROSEMIDE [Concomitant]
  3. DIAZEPAM [Concomitant]
  4. RESCUE REMEDY [Concomitant]
  5. SPIRIVA [Concomitant]
  6. LOVASTATIN [Concomitant]
  7. PROVENTIL [Concomitant]
  8. LISINOPRIL [Concomitant]
  9. PAROXETINE HCL [Concomitant]
  10. HYDROCODONE BITARTRATE AND ACETAMINOPHEN [Concomitant]
  11. POTASSIUM [Concomitant]

REACTIONS (2)
  - DRUG INEFFECTIVE [None]
  - WHEEZING [None]
